FAERS Safety Report 10214688 (Version 1)
Quarter: 2014Q2

REPORT INFORMATION
  Report Type: Report from Study
  Country: US (occurrence: US)
  Receive Date: 20140603
  Receipt Date: 20140603
  Transmission Date: 20141212
  Serious: Yes (Hospitalization)
  Sender: FDA-Public Use
  Company Number: US-TEVA-484713USA

PATIENT
  Age: 57 Year
  Sex: Male
  Weight: 92.62 kg

DRUGS (1)
  1. BENDAMUSTINE [Suspect]
     Indication: CHRONIC LYMPHOCYTIC LEUKAEMIA
     Dosage: D1, 2 Q28D
     Route: 058
     Dates: start: 20131002, end: 20131226

REACTIONS (2)
  - Tumour lysis syndrome [Recovered/Resolved]
  - Tumour invasion [Recovered/Resolved]
